FAERS Safety Report 6584485-0 (Version None)
Quarter: 2010Q1

REPORT INFORMATION
  Report Type: 
  Country: None (occurrence: None)
  Receive Date: 20100213
  Receipt Date: 20100213
  Transmission Date: 20100710
  Serious: Yes (Death)
  Sender: FDA-Public Use
  Company Number: None

PATIENT
  Age: 53 Year
  Sex: Female
  Weight: 58.9676 kg

DRUGS (1)
  1. FENTANYL [Suspect]
     Indication: PAIN
     Dosage: 50 MICROGRAMS HOUR TRANSDERMAL
     Route: 062
     Dates: start: 20090101, end: 20100107

REACTIONS (2)
  - ANALGESIC DRUG LEVEL INCREASED [None]
  - DEVICE BREAKAGE [None]
